FAERS Safety Report 26126038 (Version 2)
Quarter: 2025Q4

REPORT INFORMATION
  Report Type: Report from Study
  Country: US (occurrence: None)
  Receive Date: 20251205
  Receipt Date: 20251217
  Transmission Date: 20260117
  Serious: Yes (Hospitalization, Other)
  Sender: UCB
  Company Number: US-UCBSA-2025028583

PATIENT
  Age: 18 Year

DRUGS (32)
  1. FENFLURAMINE [Suspect]
     Active Substance: FENFLURAMINE
     Indication: Lennox-Gastaut syndrome
     Dosage: 10 MILLILITER, 2X/DAY (BID)
  2. FENFLURAMINE [Suspect]
     Active Substance: FENFLURAMINE
     Dosage: 10 MILLILITER, 2X/DAY (BID)
  3. FENFLURAMINE [Suspect]
     Active Substance: FENFLURAMINE
     Dosage: 10 MILLILITER, 2X/DAY (BID)
  4. FENFLURAMINE [Suspect]
     Active Substance: FENFLURAMINE
     Dosage: 7.5 MILLILITER, 2X/DAY (BID)
  5. ANTIGAS [Concomitant]
     Indication: Product used for unknown indication
     Dosage: 200-200-20 MG/5 ML SUSPENSION
  6. (DULCOLAX) [Concomitant]
     Indication: Constipation
     Dosage: 10 MILLIGRAM
  7. BRIVIACT [Concomitant]
     Active Substance: BRIVARACETAM
     Indication: Product used for unknown indication
     Dosage: 15 ML (150 MG TOTAL) BY G-TUBE ROUTE IN THE MORNING AND 15 ML (150 MG TOTAL) IN THE EVENING
  8. XCOPRI [Concomitant]
     Active Substance: CENOBAMATE
     Indication: Product used for unknown indication
     Dosage: TAKE 100 MG BY MOUTH NIGHTLY. CRUSH TABLETS AND COMBINE 25 ML OF WATER; SWIRL TO SUSPEND, ADMINISTER WITH A SYRINGE INTO NG TUBE
     Route: 061
  9. XCOPRI [Concomitant]
     Active Substance: CENOBAMATE
     Dosage: TAKE 200 MG BY MOUTH AT BEDTIME. TAKE WITH 100 MG TABLET FOR TOTAL OF 300 MG NIGHTLY, CRUSH TABLETS AND COMBINE 25 ML OF WATER; SWIRL TO SUSPEND, ADMINISTER WITH A SYRINGE INTO NG TUBE
     Route: 061
  10. VITAMIN D3 [Concomitant]
     Active Substance: CHOLECALCIFEROL
     Indication: Product used for unknown indication
     Dosage: AKE 1 CAPSULE BY MOUTH IN THE MORNING
  11. ONFI [Concomitant]
     Active Substance: CLOBAZAM
     Indication: Product used for unknown indication
     Dosage: TAKE 1 ML (2.5 MG TOTAL) BY MOUTH AT BEDTIMEER
     Route: 061
  12. KLONOPIN [Concomitant]
     Active Substance: CLONAZEPAM
     Indication: Product used for unknown indication
     Dosage: 0.5 MILLIGRAM
  13. CATAPRES [Concomitant]
     Active Substance: CLONIDINE HYDROCHLORIDE
     Indication: Product used for unknown indication
     Dosage: 0.1 MG TABLET, 3 TABLETS (0.3 MG TOTAL) BY G-TUBE ROUTE AT BEDTIME
  14. CRANBERRYNE [Concomitant]
     Indication: Product used for unknown indication
     Dosage: 450 MG TABLET, 450 MG BY G-TUBE ROUTE IN THE MORNING AND 450 MG IN THE EVENING
  15. DIAZEPAM [Concomitant]
     Active Substance: DIAZEPAM
     Indication: Product used for unknown indication
     Dosage: 20 MG/2 SPRAY (10MG/0.1ML X2) SPRAY.NON-AEROSOL, ADMINISTER 20 MG INTO AFFECTED NOSTRIL(S) ONCE AS NEEDED (GIVE AT ONSET OF SEIZURE ACTIVITY) FOR UP TO 1 DOSE
  16. COLACE [Concomitant]
     Active Substance: DOCUSATE SODIUM
     Indication: Product used for unknown indication
     Dosage: 100 MG CAPSULE, 1 CAPSULE (100 MG TOTAL) BY G-TUBE ROUTE IN THE MORNING AND 1 CAPSULE (100 MG TOTAL) IN THE EVENING.
  17. DUPIXENT [Concomitant]
     Active Substance: DUPILUMAB
     Indication: Product used for unknown indication
     Dosage: 300 MG/2 ML INJECTION, INJECT 2 ML (300 MG TOTAL) UNDER THE SKIN EVERY 14 (FOURTEEN) DAYS.
  18. EPIDIOLEX [Concomitant]
     Active Substance: CANNABIDIOL
     Indication: Product used for unknown indication
     Dosage: TAKE 6.5 ML (650 MG TOTAL) BY MOUTH IN THE MORNING AND 6.5 ML (650 MG TOTAL) IN THE EVENING.
  19. LEXAPRO [Concomitant]
     Active Substance: ESCITALOPRAM OXALATE
     Indication: Product used for unknown indication
     Dosage: 10 MG TABLET, TAKE 1 TABLET (10 MG TOTAL) BY MOUTH DAILY.
     Route: 061
  20. FERROUS SULFATE [Concomitant]
     Active Substance: FERROUS SULFATE
     Indication: Product used for unknown indication
     Dosage: 325 MG (65 MG IRON) EC TABLET, TAKE 1 TABLET BY MOUTH ONCE DAILY WITH BREAKFAST
  21. SIMPESSE [Concomitant]
     Active Substance: ETHINYL ESTRADIOL\LEVONORGESTREL
     Indication: Product used for unknown indication
     Dosage: 0.15 MG-30 MCG (84)/1 O MCG (7) TABLETS.DOSE PACK,3 MONTH, TAKE 1 TABLET BY MOUTH DAILY. ABLE TO CRUSH AND PUT THROUGH G-TUBE IF NEEDED
  22. LAMICTAL [Concomitant]
     Active Substance: LAMOTRIGINE
     Indication: Product used for unknown indication
     Dosage: 100 MG TABLET, TAKE 2 TABLETS (200 MG TOTAL) BY MOUTH DAILY
  23. MICOTIN [MICONAZOLE NITRATE] [Concomitant]
     Indication: Product used for unknown indication
     Dosage: 2 % VAGINAL CREAM, USE 1 APPLICATORFUL VAGINALLY ONCE DAILY FOR 7 DAYS
  24. VITAMINS [Concomitant]
     Active Substance: VITAMINS
     Indication: Product used for unknown indication
     Dosage: TAKE 1 TABLET BY MOUTH IN THE MORNING
     Route: 061
  25. SEROQUEL [Concomitant]
     Active Substance: QUETIAPINE FUMARATE
     Indication: Product used for unknown indication
     Dosage: 100 MG TABLET, 1 TABLET (100 MG TOTAL) BY G-TUBE ROUTE NIGHTLY
  26. DESYREL [Concomitant]
     Active Substance: TRAZODONE HYDROCHLORIDE
     Indication: Product used for unknown indication
     Dosage: 100 MILLIGRAM TABLET, 1 TABLET (100 MG TOTAL) BY G-TUBE ROUTE NIGHTLY
  27. VALPROATE SODIUM [Concomitant]
     Active Substance: VALPROATE SODIUM
     Indication: Product used for unknown indication
     Dosage: TAKE 10 ML (500 MG TOTAL) BY MOUTH 2 (TWO) TIMES A DAY AND 2.5 ML (125 MG TOTAL) DAILY WITH LUNCH.
  28. MACROBID [Concomitant]
     Active Substance: NITROFURANTOIN\NITROFURANTOIN MONOHYDRATE
     Indication: Product used for unknown indication
     Dosage: 100 MG CAPSULE, 1 CAPSULE (100 MG TOTAL) BY G-TUBE ROUTE IN THE MORNING AND 1 CAPSULE (100 MG TOTAL) IN THE EVENING.
  29. ZOFRAN [Concomitant]
     Active Substance: ONDANSETRON HYDROCHLORIDE
     Indication: Product used for unknown indication
     Dosage: 4 MG DISINTEGRATING TABLET, TAKE 1 TABLET (4 MG TOTAL) BY MOUTH EVERY 8 (EIGHT) HOURS AS NEEDED FOR NAUSEA OR VOMITING FOR UP TO 7 DOSES.
  30. GLYCOLAX [Concomitant]
     Active Substance: POLYETHYLENE GLYCOL 3350
     Indication: Product used for unknown indication
     Dosage: TAKE 17 G BY MOUTH IN THE MORNING AND 17 G IN THE EVENING
  31. CLOBAZAM [Concomitant]
     Active Substance: CLOBAZAM
     Indication: Product used for unknown indication
     Dosage: 1 MILLILITER
  32. LAMOTRIGINE [Concomitant]
     Active Substance: LAMOTRIGINE
     Indication: Product used for unknown indication

REACTIONS (17)
  - Seizure [Not Recovered/Not Resolved]
  - Gastrostomy [Not Recovered/Not Resolved]
  - Somnolence [Unknown]
  - Petit mal epilepsy [Unknown]
  - Status epilepticus [Unknown]
  - Pneumonia [Not Recovered/Not Resolved]
  - Dysphagia [Not Recovered/Not Resolved]
  - Weight decreased [Not Recovered/Not Resolved]
  - Lethargy [Unknown]
  - Balance disorder [Unknown]
  - Fatigue [Unknown]
  - Hypotonia [Unknown]
  - Apathy [Unknown]
  - Dysstasia [Unknown]
  - Eating disorder [Unknown]
  - Overdose [Unknown]
  - Product use issue [Unknown]
